FAERS Safety Report 26086951 (Version 1)
Quarter: 2025Q4

REPORT INFORMATION
  Report Type: Spontaneous
  Country: EU (occurrence: EU)
  Receive Date: 20251125
  Receipt Date: 20251125
  Transmission Date: 20260118
  Serious: Yes (Other)
  Sender: RANBAXY
  Company Number: EU-SUN PHARMACEUTICAL INDUSTRIES INC-2025R1-534230

PATIENT
  Age: 78 Year
  Sex: Female

DRUGS (4)
  1. METRONIDAZOLE [Suspect]
     Active Substance: METRONIDAZOLE
     Indication: Liver abscess
     Dosage: 500 MILLIGRAM, TID
     Route: 042
  2. METRONIDAZOLE [Concomitant]
     Active Substance: METRONIDAZOLE
     Indication: Liver abscess
     Dosage: UNK
     Route: 048
  3. CEFUROXIME [Concomitant]
     Active Substance: CEFUROXIME
     Indication: Liver abscess
     Dosage: 750 MILLIGRAM, BID
     Route: 042
  4. CEFUROXIME [Concomitant]
     Active Substance: CEFUROXIME
     Indication: Liver abscess
     Dosage: 500 MILLIGRAM, TID
     Route: 048

REACTIONS (1)
  - Toxic encephalopathy [Recovering/Resolving]
